FAERS Safety Report 5172489-4 (Version None)
Quarter: 2006Q4

REPORT INFORMATION
  Report Type: 
  Country: None (occurrence: None)
  Receive Date: 20061205
  Receipt Date: 20061128
  Transmission Date: 20070319
  Serious: Yes (Hospitalization)
  Sender: FDA-Public Use
  Company Number: 200611AGG00523

PATIENT
  Age: 40 Year

DRUGS (1)
  1. AGGRASTAT [Suspect]
     Dosage: IV (ICH 042)

REACTIONS (2)
  - SEPSIS [None]
  - THROMBOCYTOPENIA [None]
